FAERS Safety Report 24134701 (Version 5)
Quarter: 2024Q4

REPORT INFORMATION
  Report Type: Report from Study
  Country: US (occurrence: US)
  Receive Date: 20240725
  Receipt Date: 20241119
  Transmission Date: 20250114
  Serious: Yes (Death, Hospitalization, Other)
  Sender: ABBVIE
  Company Number: US-ABBVIE-5850794

PATIENT
  Age: 88 Year
  Sex: Male
  Weight: 102 kg

DRUGS (3)
  1. CREON [Suspect]
     Active Substance: PANCRELIPASE AMYLASE\PANCRELIPASE LIPASE\PANCRELIPASE PROTEASE
     Indication: Pancreatitis acute
     Route: 048
     Dates: start: 2014, end: 20240503
  2. CREON [Suspect]
     Active Substance: PANCRELIPASE AMYLASE\PANCRELIPASE LIPASE\PANCRELIPASE PROTEASE
     Indication: Pancreatitis acute
     Dosage: LAST ADMIN DATE: 2024
     Route: 048
     Dates: start: 201501
  3. CREON [Suspect]
     Active Substance: PANCRELIPASE AMYLASE\PANCRELIPASE LIPASE\PANCRELIPASE PROTEASE
     Indication: Pancreatitis acute
     Dosage: 3 CAPSULE AT EACH MEAL AND 1 CAPSULE WITH SNACK
     Route: 048
     Dates: start: 2015

REACTIONS (6)
  - Hepatic cirrhosis [Fatal]
  - Macular degeneration [Unknown]
  - Renal disorder [Fatal]
  - Jaundice [Unknown]
  - Pancreatic carcinoma [Fatal]
  - Biliary obstruction [Unknown]

NARRATIVE: CASE EVENT DATE: 20231101
